FAERS Safety Report 5482393-X (Version None)
Quarter: 2007Q4

REPORT INFORMATION
  Report Type: 
  Country: None (occurrence: None)
  Receive Date: 20071011
  Receipt Date: 20071009
  Transmission Date: 20080405
  Serious: Yes (Disabling)
  Sender: FDA-Public Use
  Company Number: B0486133A

PATIENT
  Age: 76 Year
  Sex: Female
  Weight: 48.1 kg

DRUGS (15)
  1. VALTREX [Suspect]
     Indication: HERPES ZOSTER
     Dosage: 500MG PER DAY
     Route: 048
     Dates: start: 20070820, end: 20070825
  2. MERISLON [Concomitant]
     Indication: DIZZINESS
     Dosage: 18MG PER DAY
     Route: 048
     Dates: end: 20070831
  3. GASLON N [Concomitant]
     Indication: GASTRITIS
     Dosage: 4MG PER DAY
     Route: 048
     Dates: end: 20070831
  4. PREDNISOLONE [Concomitant]
     Indication: RHEUMATOID ARTHRITIS
     Dosage: 5MG PER DAY
     Route: 048
  5. FAMOTIDINE [Concomitant]
     Indication: GASTRITIS
     Dosage: 10MG PER DAY
     Route: 048
     Dates: end: 20070831
  6. AMARYL [Concomitant]
     Indication: DIABETES MELLITUS
     Dosage: 1MG PER DAY
     Route: 048
     Dates: end: 20070831
  7. ONEALFA [Concomitant]
     Indication: OSTEOPOROSIS
     Dosage: .5MCG PER DAY
     Route: 048
     Dates: end: 20070831
  8. PURSENNID [Concomitant]
     Indication: CONSTIPATION
     Dosage: 36MG PER DAY
     Route: 048
     Dates: end: 20070831
  9. FUROSEMIDE [Concomitant]
     Dosage: 120MG PER DAY
     Route: 048
     Dates: end: 20070831
  10. NORVASC [Concomitant]
     Indication: HYPERTENSION
     Dosage: 5MG PER DAY
     Route: 048
  11. ALLOPURINOL [Concomitant]
     Dosage: 100MG PER DAY
     Route: 048
     Dates: end: 20070831
  12. SERMION [Concomitant]
     Dosage: 45MG PER DAY
     Route: 048
     Dates: end: 20070831
  13. FRANDOL S [Concomitant]
     Indication: HYPERTENSION
     Dosage: 40MG PER DAY
     Route: 061
     Dates: end: 20070831
  14. BASEN [Concomitant]
     Indication: DIABETES MELLITUS
     Dosage: .6MG PER DAY
     Route: 048
     Dates: end: 20070831
  15. ALDACTONE [Concomitant]
     Indication: HYPERTENSION
     Dosage: 25MG PER DAY
     Route: 048
     Dates: end: 20070831

REACTIONS (7)
  - ALTERED STATE OF CONSCIOUSNESS [None]
  - DEHYDRATION [None]
  - FALL [None]
  - ORAL INTAKE REDUCED [None]
  - RENAL IMPAIRMENT [None]
  - RIB FRACTURE [None]
  - SOMNOLENCE [None]
